FAERS Safety Report 11427415 (Version 2)
Quarter: 2018Q4

REPORT INFORMATION
  Report Type: Report from Study
  Country: US (occurrence: US)
  Receive Date: 20150827
  Receipt Date: 20181005
  Transmission Date: 20190204
  Serious: Yes (Other)
  Sender: FDA-Public Use
  Company Number: US-SA-2014SA174045

PATIENT
  Age: 40 Year
  Sex: Male

DRUGS (2)
  1. AGALSIDASE BETA [Suspect]
     Active Substance: AGALSIDASE BETA
     Indication: FABRY^S DISEASE
     Dosage: 110 MG,QOW
     Route: 041
     Dates: start: 20030915
  2. AGALSIDASE BETA [Suspect]
     Active Substance: AGALSIDASE BETA
     Dosage: 110 MG,UNK
     Route: 041
     Dates: start: 20120621

REACTIONS (4)
  - Choking [Unknown]
  - Pain [Unknown]
  - Infusion site extravasation [Not Recovered/Not Resolved]
  - Renal impairment [Not Recovered/Not Resolved]

NARRATIVE: CASE EVENT DATE: 20141210
